FAERS Safety Report 5068820-0 (Version None)
Quarter: 2006Q3

REPORT INFORMATION
  Report Type: 
  Country: None (occurrence: None)
  Receive Date: 20060802
  Receipt Date: 20060417
  Transmission Date: 20061208
  Serious: No
  Sender: FDA-Public Use
  Company Number: US-BRISTOL-MYERS SQUIBB COMPANY-13349089

PATIENT
  Sex: Female

DRUGS (1)
  1. COUMADIN [Suspect]
     Dosage: DURATION: 3 YEARS
     Route: 048

REACTIONS (6)
  - DYSARTHRIA [None]
  - HEAT RASH [None]
  - HYPERHIDROSIS [None]
  - INSOMNIA [None]
  - SWELLING FACE [None]
  - SWOLLEN TONGUE [None]
